FAERS Safety Report 8500947-0 (Version None)
Quarter: 2012Q3

REPORT INFORMATION
  Report Type: 
  Country: None (occurrence: None)
  Receive Date: 20120703
  Receipt Date: 20120703
  Transmission Date: 20120928
  Serious: No
  Sender: FDA-Public Use
  Company Number: None

PATIENT
  Age: 68 Year
  Sex: Male
  Weight: 122.3 kg

DRUGS (1)
  1. CARVEDILOL [Suspect]
     Indication: HYPERTENSION
     Dosage: 3.125 MG BID PO
     Route: 048
     Dates: start: 20120315, end: 20120328

REACTIONS (3)
  - DYSPNOEA [None]
  - SYNCOPE [None]
  - PALPITATIONS [None]
